FAERS Safety Report 12824570 (Version 1)
Quarter: 2016Q4

REPORT INFORMATION
  Report Type: Spontaneous
  Country: FR (occurrence: FR)
  Receive Date: 20161007
  Receipt Date: 20161007
  Transmission Date: 20170207
  Serious: Yes (Hospitalization)
  Sender: FDA-Public Use
  Company Number: FR-PFIZER INC-2016459516

PATIENT
  Age: 70 Year
  Sex: Female

DRUGS (18)
  1. DIFFU-K 600 [Concomitant]
  2. LASILIX /00032601/ [Concomitant]
     Active Substance: FUROSEMIDE
  3. INEXIUM /01479302/ [Concomitant]
     Active Substance: ESOMEPRAZOLE MAGNESIUM
  4. IMOVANE [Concomitant]
     Active Substance: ZOPICLONE
  5. DOLIPRANE [Concomitant]
     Active Substance: ACETAMINOPHEN
  6. STABLON [Concomitant]
     Active Substance: TIANEPTINE
  7. KARDEGIC [Concomitant]
     Active Substance: ASPIRIN LYSINE
  8. FLAGYL [Concomitant]
     Active Substance: METRONIDAZOLE\METRONIDAZOLE HYDROCHLORIDE
     Indication: KLEBSIELLA INFECTION
     Dosage: UNK
     Dates: start: 20150506
  9. BURINEX [Concomitant]
     Active Substance: BUMETANIDE
  10. ALPRAZOLAM. [Concomitant]
     Active Substance: ALPRAZOLAM
  11. RAMIPRIL. [Concomitant]
     Active Substance: RAMIPRIL
  12. TIENAM [Suspect]
     Active Substance: CILASTATIN SODIUM\IMIPENEM
     Indication: KLEBSIELLA INFECTION
     Dosage: UNK
     Route: 042
     Dates: start: 20150412, end: 20150413
  13. ACUPAN [Suspect]
     Active Substance: NEFOPAM HYDROCHLORIDE
     Indication: PAIN
  14. TYGACIL [Suspect]
     Active Substance: TIGECYCLINE
     Indication: KLEBSIELLA INFECTION
     Dosage: UNK
     Route: 042
     Dates: start: 20150413, end: 20150428
  15. TYGACIL [Suspect]
     Active Substance: TIGECYCLINE
     Dosage: UNK
     Dates: start: 20150506
  16. OXYNORMORO [Concomitant]
     Active Substance: OXYCODONE
  17. TAZOCILLINE [Suspect]
     Active Substance: PIPERACILLIN SODIUM\TAZOBACTAM SODIUM
     Indication: KLEBSIELLA INFECTION
     Dosage: UNK
     Route: 042
     Dates: start: 20150409, end: 20150412
  18. BISOCE [Concomitant]
     Active Substance: BISOPROLOL

REACTIONS (3)
  - Erythema [Recovered/Resolved]
  - Acute generalised exanthematous pustulosis [Recovered/Resolved]
  - Eosinophilia [Recovered/Resolved]

NARRATIVE: CASE EVENT DATE: 20150413
